FAERS Safety Report 15946500 (Version 1)
Quarter: 2019Q1

REPORT INFORMATION
  Report Type: Report from Study
  Country: ES (occurrence: ES)
  Receive Date: 20190212
  Receipt Date: 20190212
  Transmission Date: 20190417
  Serious: Yes (Other)
  Sender: FDA-Public Use
  Company Number: ES-SA-2019SA030688

PATIENT
  Weight: 88 kg

DRUGS (2)
  1. INSULIN GLARGINE [Suspect]
     Active Substance: INSULIN GLARGINE
     Indication: TYPE 2 DIABETES MELLITUS
     Dosage: 50 IU, QD (EVERY 24 H)
     Route: 058
     Dates: start: 20170510
  2. APIDRA [Concomitant]
     Active Substance: INSULIN GLULISINE
     Indication: TYPE 2 DIABETES MELLITUS
     Dosage: 6 DF, TID (6-6-6)
     Route: 058

REACTIONS (3)
  - Knee arthroplasty [Unknown]
  - Product storage error [Unknown]
  - Blood glucose fluctuation [Recovered/Resolved]
